FAERS Safety Report 16426480 (Version 1)
Quarter: 2019Q2

REPORT INFORMATION
  Report Type: Spontaneous
  Country: US (occurrence: US)
  Receive Date: 20190613
  Receipt Date: 20190613
  Transmission Date: 20190711
  Serious: Yes (Hospitalization)
  Sender: FDA-Public Use
  Company Number: US-JNJFOC-20190614516

PATIENT
  Age: 49 Year
  Sex: Male

DRUGS (1)
  1. INVOKANA [Suspect]
     Active Substance: CANAGLIFLOZIN
     Indication: PRODUCT USED FOR UNKNOWN INDICATION
     Route: 048

REACTIONS (6)
  - Toe amputation [Unknown]
  - Product use issue [Unknown]
  - Cellulitis [Unknown]
  - Off label use [Unknown]
  - Osteomyelitis [Unknown]
  - Septic necrosis [Unknown]

NARRATIVE: CASE EVENT DATE: 20140926
